FAERS Safety Report 13420636 (Version 2)
Quarter: 2017Q2

REPORT INFORMATION
  Report Type: Report from Study
  Country: MX (occurrence: MX)
  Receive Date: 20170408
  Receipt Date: 20170628
  Transmission Date: 20170830
  Serious: Yes (Other)
  Sender: FDA-Public Use
  Company Number: PHHY2017MX052909

PATIENT
  Age: 28 Year
  Sex: Female
  Weight: 80 kg

DRUGS (4)
  1. PRIMOGYN [Concomitant]
     Indication: PLANNING TO BECOME PREGNANT
     Dosage: UNK
     Route: 065
  2. METICORTEN [Concomitant]
     Active Substance: PREDNISONE
     Indication: PLANNING TO BECOME PREGNANT
     Dosage: UNK
     Route: 065
  3. FEMARA [Suspect]
     Active Substance: LETROZOLE
     Indication: INFERTILITY
     Dosage: 2 DF, QD
     Route: 065
     Dates: start: 201506, end: 201506
  4. FEMARA [Suspect]
     Active Substance: LETROZOLE
     Indication: OVARIAN CYST
     Dosage: 2 DF, QD
     Route: 048
     Dates: start: 201703

REACTIONS (4)
  - Maternal exposure during pregnancy [Unknown]
  - Abortion spontaneous [Recovered/Resolved]
  - Ovarian cyst [Unknown]
  - Product use in unapproved indication [Not Recovered/Not Resolved]

NARRATIVE: CASE EVENT DATE: 201506
